FAERS Safety Report 11592062 (Version 1)
Quarter: 2015Q4

REPORT INFORMATION
  Report Type: Spontaneous
  Country: US (occurrence: US)
  Receive Date: 20151005
  Receipt Date: 20151005
  Transmission Date: 20160304
  Serious: No
  Sender: FDA-Public Use
  Company Number: US-PFIZER INC-2015327033

PATIENT
  Age: 48 Year
  Sex: Female

DRUGS (5)
  1. BUPROPION. [Interacting]
     Active Substance: BUPROPION
     Indication: MIDDLE INSOMNIA
     Dosage: UNK
  2. BRINTELLIX [Interacting]
     Active Substance: VORTIOXETINE HYDROBROMIDE
     Indication: MAJOR DEPRESSION
     Dosage: 10 MG, DAILY
     Route: 048
  3. XANAX [Interacting]
     Active Substance: ALPRAZOLAM
     Indication: PANIC ATTACK
  4. BUPROPION. [Interacting]
     Active Substance: BUPROPION
     Indication: PANIC ATTACK
  5. XANAX [Suspect]
     Active Substance: ALPRAZOLAM
     Indication: MIDDLE INSOMNIA
     Dosage: UNK

REACTIONS (4)
  - Labelled drug-drug interaction medication error [Unknown]
  - Panic attack [Unknown]
  - Middle insomnia [Unknown]
  - Hyperhidrosis [Unknown]
